FAERS Safety Report 6117444-2 (Version None)
Quarter: 2009Q1

REPORT INFORMATION
  Report Type: 
  Country: None (occurrence: None)
  Receive Date: 20090314
  Receipt Date: 20090116
  Transmission Date: 20090719
  Serious: No
  Sender: FDA-Public Use
  Company Number: US-ABBOTT-09P-163-0498768-00

PATIENT
  Sex: Female
  Weight: 63.56 kg

DRUGS (4)
  1. HUMIRA [Suspect]
     Indication: ANKYLOSING SPONDYLITIS
     Dosage: EVERY TWO WEEKS
     Route: 058
     Dates: start: 20070507
  2. HUMIRA [Suspect]
     Indication: CROHN'S DISEASE
  3. SYNTHROID [Concomitant]
     Indication: HYPOTHYROIDISM
  4. CYTOMEL [Concomitant]
     Indication: HYPOTHYROIDISM

REACTIONS (2)
  - MENSTRUATION IRREGULAR [None]
  - RASH [None]
